FAERS Safety Report 4432817-1 (Version None)
Quarter: 2004Q3

REPORT INFORMATION
  Report Type: 
  Country: None (occurrence: None)
  Receive Date: 20040823
  Receipt Date: 20040805
  Transmission Date: 20050211
  Serious: Yes (Hospitalization)
  Sender: FDA-Public Use
  Company Number: DSA_24804_2004

PATIENT
  Age: 78 Year
  Sex: Female
  Weight: 62 kg

DRUGS (7)
  1. ENALAPRIL MALEATE AND HYDROCHLOROTHIAZIDE [Suspect]
     Indication: ESSENTIAL HYPERTENSION
     Dates: start: 19980101
  2. DEPAKINE [Suspect]
     Indication: PARTIAL SEIZURES
     Dosage: 800 MG Q DAY PO
     Route: 048
     Dates: start: 19900101, end: 20040228
  3. VERAPAMIL HCL [Suspect]
     Indication: ANGINA PECTORIS
     Dosage: 120 MG PO
     Route: 048
     Dates: start: 19980101
  4. PLAVIX [Concomitant]
  5. LEVOTHROID [Concomitant]
  6. MINITRAN [Concomitant]
  7. PANTOPRAZOLE [Concomitant]

REACTIONS (2)
  - DRUG INTERACTION [None]
  - INAPPROPRIATE ANTIDIURETIC HORMONE SECRETION [None]
